FAERS Safety Report 15804111 (Version 1)
Quarter: 2019Q1

REPORT INFORMATION
  Report Type: Other
  Country: US (occurrence: US)
  Receive Date: 20190109
  Receipt Date: 20190109
  Transmission Date: 20190417
  Serious: No
  Sender: FDA-Public Use
  Company Number: US-MERZ NORTH AMERICA, INC.-19MRZ-00015

PATIENT

DRUGS (1)
  1. XEOMIN [Suspect]
     Active Substance: INCOBOTULINUMTOXINA
     Indication: PRODUCT USED FOR UNKNOWN INDICATION
     Dosage: UNKNOWN

REACTIONS (2)
  - Skin discolouration [Not Recovered/Not Resolved]
  - Contusion [Not Recovered/Not Resolved]
